FAERS Safety Report 9011286 (Version 2)
Quarter: 2013Q1

REPORT INFORMATION
  Report Type: Spontaneous
  Country: US (occurrence: US)
  Receive Date: 20130109
  Receipt Date: 20130128
  Transmission Date: 20140127
  Serious: Yes (Other)
  Sender: FDA-Public Use
  Company Number: US-ALLERGAN-1300086US

PATIENT
  Age: 56 Year
  Sex: Female

DRUGS (6)
  1. BOTOX COSMETIC [Suspect]
     Dosage: UNK, SINGLE
     Dates: start: 201210, end: 201210
  2. SYNTHROID [Concomitant]
     Indication: HYPOTHYROIDISM
     Dosage: 0.75 MG, QD
     Route: 048
  3. SINGULAIR [Concomitant]
     Indication: PRODUCT USED FOR UNKNOWN INDICATION
     Dosage: UNK UNK, QD
     Route: 055
  4. BOTOX COSMETIC [Suspect]
     Indication: SKIN WRINKLING
     Dosage: 12 UNITS, SINGLE
     Route: 030
     Dates: start: 20121214, end: 20121214
  5. BOTOX COSMETIC [Suspect]
     Indication: SKIN WRINKLING
     Dosage: 6 UNITS, SINGLE
     Route: 030
     Dates: start: 20121214, end: 20121214
  6. BOTOX COSMETIC [Suspect]
     Dosage: 4 UNITS, SINGLE
     Route: 030
     Dates: start: 20121214, end: 20121214

REACTIONS (8)
  - Pharyngeal oedema [Unknown]
  - Dysphagia [Unknown]
  - Diarrhoea [Unknown]
  - Dysphagia [Unknown]
  - Mastication disorder [Unknown]
  - Muscular weakness [Unknown]
  - Eye disorder [Unknown]
  - Weight decreased [Unknown]
